FAERS Safety Report 19884039 (Version 3)
Quarter: 2022Q1

REPORT INFORMATION
  Report Type: Spontaneous
  Country: US (occurrence: US)
  Receive Date: 20210927
  Receipt Date: 20220223
  Transmission Date: 20220423
  Serious: Yes (Hospitalization)
  Sender: FDA-Public Use
  Company Number: US-GLOBAL BLOOD THERAPEUTICS INC-US-GBT-21-03275

PATIENT
  Sex: Male

DRUGS (2)
  1. OXBRYTA [Suspect]
     Active Substance: VOXELOTOR
     Indication: Sickle cell disease
     Route: 048
     Dates: start: 202104, end: 2021
  2. OXBRYTA [Suspect]
     Active Substance: VOXELOTOR
     Route: 048

REACTIONS (6)
  - Sickle cell anaemia with crisis [Unknown]
  - Sickle cell anaemia with crisis [Unknown]
  - Sickle cell anaemia with crisis [Recovered/Resolved]
  - Lip discolouration [Not Recovered/Not Resolved]
  - Rash [Unknown]
  - Product dose omission issue [Unknown]

NARRATIVE: CASE EVENT DATE: 20210101
